FAERS Safety Report 5880943-2 (Version None)
Quarter: 2008Q3

REPORT INFORMATION
  Report Type: 
  Country: None (occurrence: None)
  Receive Date: 20080910
  Receipt Date: 20080829
  Transmission Date: 20090109
  Serious: Yes (Life-Threatening, Hospitalization)
  Sender: FDA-Public Use
  Company Number: 95143

PATIENT
  Age: 11 Month
  Sex: Female

DRUGS (1)
  1. ACETAMINOPHEN [Suspect]
     Dosage: 5.2 G/UNK.RECTAL
     Route: 054

REACTIONS (3)
  - LIVER INJURY [None]
  - OVERDOSE [None]
  - TRANSAMINASES INCREASED [None]
